FAERS Safety Report 26045447 (Version 2)
Quarter: 2025Q4

REPORT INFORMATION
  Report Type: Report from Study
  Country: US (occurrence: US)
  Receive Date: 20251114
  Receipt Date: 20251216
  Transmission Date: 20260117
  Serious: Yes (Other)
  Sender: TAKEDA
  Company Number: US-TAKEDA-2025TUS031479

PATIENT
  Age: 45 Year
  Sex: Female
  Weight: 115 kg

DRUGS (1)
  1. .ALPHA.1-PROTEINASE INHIBITOR HUMAN [Suspect]
     Active Substance: .ALPHA.1-PROTEINASE INHIBITOR HUMAN
     Indication: Alpha-1 antitrypsin deficiency
     Dosage: 60 MG/KG, 1/WEEK
     Dates: start: 20241208

REACTIONS (9)
  - Narcolepsy [Unknown]
  - COVID-19 [Unknown]
  - Gingival bleeding [Unknown]
  - Heart rate abnormal [Unknown]
  - Wheezing [Unknown]
  - Secretion discharge [Unknown]
  - Gastrointestinal infection [Unknown]
  - Dyspnoea [Unknown]
  - Cough [Unknown]
